FAERS Safety Report 18807027 (Version 1)
Quarter: 2021Q1

REPORT INFORMATION
  Report Type: Spontaneous
  Country: US (occurrence: US)
  Receive Date: 20210128
  Receipt Date: 20210128
  Transmission Date: 20210419
  Serious: No
  Sender: FDA-Public Use
  Company Number: None

PATIENT
  Age: 57 Year
  Sex: Male
  Weight: 80.55 kg

DRUGS (8)
  1. WELLBUTRIN [Concomitant]
     Active Substance: BUPROPION HYDROCHLORIDE
  2. LOVAZA [Concomitant]
     Active Substance: OMEGA-3-ACID ETHYL ESTERS
  3. SIMVASTATIN. [Concomitant]
     Active Substance: SIMVASTATIN
  4. TRAZODONE [Concomitant]
     Active Substance: TRAZODONE HYDROCHLORIDE
  5. VITAMIN D [Concomitant]
     Active Substance: VITAMIN D NOS
  6. MELATONIN [Concomitant]
     Active Substance: MELATONIN
  7. SUPREP BOWEL PREP [Suspect]
     Active Substance: MAGNESIUM SULFATE\POTASSIUM SULFATE\SODIUM SULFATE
     Indication: BOWEL PREPARATION
     Dosage: ?          QUANTITY:24 TABLET(S);?
     Dates: start: 20210124, end: 20210125
  8. LUNESTA [Concomitant]
     Active Substance: ESZOPICLONE

REACTIONS (6)
  - Glossodynia [None]
  - Tongue ulceration [None]
  - Lip ulceration [None]
  - Taste disorder [None]
  - Impaired healing [None]
  - Gingival ulceration [None]

NARRATIVE: CASE EVENT DATE: 20210125
